FAERS Safety Report 6065115-3 (Version None)
Quarter: 2009Q1

REPORT INFORMATION
  Report Type: 
  Country: None (occurrence: None)
  Receive Date: 20090204
  Receipt Date: 20090126
  Transmission Date: 20090719
  Serious: Yes (Death)
  Sender: FDA-Public Use
  Company Number: US-ELI_LILLY_AND_COMPANY-US200901005381

PATIENT
  Age: 18 Year
  Sex: Male

DRUGS (2)
  1. ATOMOXETINE HCL [Suspect]
     Dosage: 1 D/F, UNK
  2. BUPROPION HCL [Concomitant]
     Dosage: 1 D/F, UNK

REACTIONS (1)
  - COMPLETED SUICIDE [None]
